FAERS Safety Report 24898597 (Version 1)
Quarter: 2025Q1

REPORT INFORMATION
  Report Type: Spontaneous
  Country: CN (occurrence: CN)
  Receive Date: 20250129
  Receipt Date: 20250129
  Transmission Date: 20250409
  Serious: Yes (Hospitalization, Other)
  Sender: ROCHE
  Company Number: CN-ROCHE-10000186643

PATIENT
  Sex: Female

DRUGS (7)
  1. ADO-TRASTUZUMAB EMTANSINE [Suspect]
     Active Substance: ADO-TRASTUZUMAB EMTANSINE
     Indication: Breast cancer
     Route: 040
     Dates: start: 20240326
  2. ADO-TRASTUZUMAB EMTANSINE [Suspect]
     Active Substance: ADO-TRASTUZUMAB EMTANSINE
     Route: 040
     Dates: start: 20240808
  3. PREDNISONE [Concomitant]
     Active Substance: PREDNISONE
     Indication: Hypopituitarism
     Route: 048
     Dates: start: 202011
  4. PREDNISONE [Concomitant]
     Active Substance: PREDNISONE
     Route: 048
     Dates: start: 202011
  5. LACTULOSE [Concomitant]
     Active Substance: LACTULOSE
     Indication: Constipation
     Route: 048
     Dates: start: 2023
  6. LEVOTHYROXINE SODIUM [Concomitant]
     Active Substance: LEVOTHYROXINE SODIUM
     Indication: Hypothyroidism
     Route: 048
     Dates: start: 2024
  7. HERBALS [Concomitant]
     Active Substance: HERBALS
     Indication: Oedema peripheral
     Route: 048
     Dates: start: 2024

REACTIONS (14)
  - Anaemia [Unknown]
  - Hypokalaemia [Recovered/Resolved]
  - Corneal lesion [Recovered/Resolved]
  - Fatigue [Unknown]
  - Discomfort [Unknown]
  - Periorbital oedema [Unknown]
  - Pyrexia [Unknown]
  - Memory impairment [Unknown]
  - Indifference [Unknown]
  - Decreased appetite [Unknown]
  - Type 2 diabetes mellitus [Recovering/Resolving]
  - Diabetic ketoacidosis [Unknown]
  - Hyperglycaemia [Unknown]
  - Xerophthalmia [Unknown]

NARRATIVE: CASE EVENT DATE: 20240425
